FAERS Safety Report 21423970 (Version 1)
Quarter: 2022Q4

REPORT INFORMATION
  Report Type: Spontaneous
  Country: US (occurrence: US)
  Receive Date: 20221007
  Receipt Date: 20221007
  Transmission Date: 20230112
  Serious: Yes (Other)
  Sender: FDA-Public Use
  Company Number: US-ORGANON-O2210USA000027

PATIENT
  Age: 58 Year
  Sex: Female
  Weight: 52.154 kg

DRUGS (6)
  1. COZAAR [Suspect]
     Active Substance: LOSARTAN POTASSIUM
     Indication: Blood pressure measurement
     Dosage: 50 MILLIGRAM, ONCE DAILY
     Route: 048
     Dates: start: 1996
  2. COZAAR [Suspect]
     Active Substance: LOSARTAN POTASSIUM
     Dosage: 50 MILLIGRAM, ONCE DAILY
     Route: 048
     Dates: end: 20220801
  3. LOSARTAN [Suspect]
     Active Substance: LOSARTAN
     Dosage: UNK
  4. TOPAMAX [Concomitant]
     Active Substance: TOPIRAMATE
     Dosage: UNK
  5. AZITHROMYCIN [Concomitant]
     Active Substance: AZITHROMYCIN
     Dosage: UNK
  6. HUMALOG [Concomitant]
     Active Substance: INSULIN LISPRO
     Dosage: UNK

REACTIONS (4)
  - Gastroenteritis salmonella [Recovered/Resolved]
  - Dehydration [Unknown]
  - Blood pressure fluctuation [Unknown]
  - Glomerular filtration rate decreased [Unknown]

NARRATIVE: CASE EVENT DATE: 20211001
